FAERS Safety Report 14985490 (Version 1)
Quarter: 2018Q2

REPORT INFORMATION
  Report Type: Spontaneous
  Country: US (occurrence: US)
  Receive Date: 20180516
  Receipt Date: 20180516
  Transmission Date: 20180711
  Serious: No
  Sender: FDA-Public Use
  Company Number: None

PATIENT
  Age: 61 Year
  Sex: Male

DRUGS (1)
  1. JULUCA [Suspect]
     Active Substance: DOLUTEGRAVIR SODIUM\RILPIVIRINE HYDROCHLORIDE
     Indication: HIV INFECTION
     Route: 048
     Dates: start: 20180316, end: 20180414

REACTIONS (5)
  - Peripheral swelling [None]
  - Renal failure [None]
  - Pain in extremity [None]
  - Arthralgia [None]
  - Joint swelling [None]

NARRATIVE: CASE EVENT DATE: 20180315
